FAERS Safety Report 8416469-1 (Version None)
Quarter: 2012Q2

REPORT INFORMATION
  Report Type: 
  Country: None (occurrence: None)
  Receive Date: 20120606
  Receipt Date: 20120606
  Transmission Date: 20120825
  Serious: Yes (Life-Threatening, Hospitalization)
  Sender: FDA-Public Use
  Company Number: CA-BAYER-2012-055800

PATIENT
  Age: 37 Year
  Sex: Female
  Weight: 61 kg

DRUGS (1)
  1. YAZ [Suspect]
     Dosage: 1 DF, QD
     Route: 048

REACTIONS (6)
  - PULMONARY HAEMORRHAGE [None]
  - INSOMNIA [None]
  - VISUAL IMPAIRMENT [None]
  - MUSCLE SPASMS [None]
  - PULMONARY EMBOLISM [None]
  - ANAEMIA [None]
